FAERS Safety Report 8609608-0 (Version None)
Quarter: 2012Q3

REPORT INFORMATION
  Report Type: 
  Country: None (occurrence: None)
  Receive Date: 20120810
  Receipt Date: 20120810
  Transmission Date: 20120928
  Serious: No
  Sender: FDA-Public Use
  Company Number: None

PATIENT
  Sex: Male
  Weight: 95.2554 kg

DRUGS (1)
  1. PRAVASTATIN [Suspect]
     Indication: HYPERCHOLESTEROLAEMIA
     Dosage: 80MG ONCE DAILY ORAL
     Route: 048
     Dates: start: 20080701, end: 20080801

REACTIONS (3)
  - MYALGIA [None]
  - PRODUCT SUBSTITUTION ISSUE [None]
  - MUSCULAR WEAKNESS [None]
